FAERS Safety Report 8430245-5 (Version None)
Quarter: 2012Q2

REPORT INFORMATION
  Report Type: 
  Country: None (occurrence: None)
  Receive Date: 20120612
  Receipt Date: 20120601
  Transmission Date: 20120825
  Serious: Yes (Life-Threatening, Hospitalization, Other)
  Sender: FDA-Public Use
  Company Number: US-SHIONOGI, INC-2012000178

PATIENT
  Sex: Male
  Weight: 51.066 kg

DRUGS (2)
  1. VYVANSE [Concomitant]
     Dosage: UNK
     Dates: start: 20110503
  2. KAPVAY [Suspect]
     Dosage: UNK
     Dates: start: 20110812, end: 20110818

REACTIONS (6)
  - SUICIDE ATTEMPT [None]
  - MOOD SWINGS [None]
  - AGGRESSION [None]
  - OPPOSITIONAL DEFIANT DISORDER [None]
  - CRYING [None]
  - DEPRESSION [None]
